FAERS Safety Report 8531423 (Version 6)
Quarter: 2020Q3

REPORT INFORMATION
  Report Type: Report from Study
  Country: US (occurrence: US)
  Receive Date: 20120426
  Receipt Date: 20120816
  Transmission Date: 20201104
  Serious: Yes (Hospitalization, Other)
  Sender: FDA-Public Use
  Company Number: US-ASTELLAS-2012US004077

PATIENT
  Age: 68 Year
  Sex: Female
  Weight: 56 kg

DRUGS (5)
  1. ERLOTINIB TABLET [Suspect]
     Active Substance: ERLOTINIB
     Indication: LUNG ADENOCARCINOMA
     Dosage: 100 MG, UID/QD
     Route: 048
     Dates: start: 20120328, end: 20120425
  2. SELUMETINIB. [Suspect]
     Active Substance: SELUMETINIB
     Dosage: 150 MG, UID/QD
     Route: 048
     Dates: start: 20120502
  3. LOMOTIL [Suspect]
     Active Substance: ATROPINE SULFATE\DIPHENOXYLATE HYDROCHLORIDE
     Indication: DIARRHOEA
     Dosage: UNK
     Route: 065
  4. ERLOTINIB TABLET [Suspect]
     Active Substance: ERLOTINIB
     Dosage: 50 MG, UID/QD
     Route: 048
     Dates: start: 20120502
  5. SELUMETINIB. [Suspect]
     Active Substance: SELUMETINIB
     Indication: LUNG ADENOCARCINOMA
     Dosage: 150 MG, UID/QD
     Route: 048
     Dates: start: 20120328, end: 20120425

REACTIONS (22)
  - Incorrect dose administered [Unknown]
  - Ejection fraction decreased [Recovered/Resolved]
  - Sinus tachycardia [Recovered/Resolved]
  - Decreased appetite [Recovered/Resolved]
  - Nausea [Recovered/Resolved]
  - Hypotension [Recovered/Resolved]
  - Syncope [Recovered/Resolved]
  - Pulmonary oedema [Recovered/Resolved]
  - Pulmonary embolism [Unknown]
  - Intracardiac thrombus [Unknown]
  - Mental status changes [Unknown]
  - Anaemia [Unknown]
  - Lethargy [Recovered/Resolved]
  - Dehydration [Recovered/Resolved]
  - Hypoalbuminaemia [Unknown]
  - Fatigue [Recovered/Resolved]
  - Cardiac failure [Recovered/Resolved]
  - Hypokalaemia [Recovered/Resolved]
  - Hyponatraemia [Recovered/Resolved]
  - Hypoxia [Recovered/Resolved]
  - Malignant pleural effusion [Recovered/Resolved]
  - Diarrhoea [Recovered/Resolved]

NARRATIVE: CASE EVENT DATE: 20120404
